FAERS Safety Report 8313727-6 (Version None)
Quarter: 2012Q2

REPORT INFORMATION
  Report Type: 
  Country: None (occurrence: None)
  Receive Date: 20120426
  Receipt Date: 20120421
  Transmission Date: 20120825
  Serious: Yes (Hospitalization)
  Sender: FDA-Public Use
  Company Number: PHHO2012US006245

PATIENT
  Sex: Female
  Weight: 109 kg

DRUGS (3)
  1. DIOVAN [Suspect]
     Indication: HYPERTENSION
     Dosage: 320 MG, QD
     Route: 048
     Dates: start: 20120117, end: 20120302
  2. LEVOTHYROXINE SODIUM [Concomitant]
     Indication: HYPOTHYROIDISM
     Dosage: 150 UG, QD
     Dates: start: 19950101, end: 20120101
  3. BENAZEPRIL HYDROCHLORIDE [Concomitant]
     Indication: HYPERTENSION
     Dosage: 20 MG, QD
     Dates: start: 20090101, end: 20111108

REACTIONS (3)
  - BRADYCARDIA [None]
  - HEADACHE [None]
  - CHEST PAIN [None]
